FAERS Safety Report 9396591 (Version 1)
Quarter: 2013Q3

REPORT INFORMATION
  Report Type: Spontaneous
  Country: US (occurrence: US)
  Receive Date: 20130711
  Receipt Date: 20130711
  Transmission Date: 20140515
  Serious: No
  Sender: FDA-Public Use
  Company Number: US-PFIZER INC-2013203944

PATIENT
  Age: 67 Year
  Sex: Male
  Weight: 103 kg

DRUGS (4)
  1. LIPITOR [Suspect]
     Indication: BLOOD TRIGLYCERIDES INCREASED
     Dosage: 10 MG, DAILY
  2. AMLODIPINE BESILATE [Suspect]
     Indication: HYPERTENSION
     Dosage: 5 MG, DAILY
     Route: 048
     Dates: start: 2013
  3. LOPRESSOR [Concomitant]
     Indication: HYPERTENSION
     Dosage: 75 MG, 2X/DAY
  4. METFORMIN [Concomitant]
     Indication: TYPE 2 DIABETES MELLITUS
     Dosage: 500 MG, 2X/DAY

REACTIONS (4)
  - Flushing [Recovering/Resolving]
  - Feeling hot [Recovering/Resolving]
  - Irritability [Unknown]
  - Drug ineffective [Unknown]
